FAERS Safety Report 15403932 (Version 2)
Quarter: 2018Q4

REPORT INFORMATION
  Report Type: Spontaneous
  Country: US (occurrence: US)
  Receive Date: 20180919
  Receipt Date: 20181220
  Transmission Date: 20190204
  Serious: No
  Sender: FDA-Public Use
  Company Number: US-AVADEL SPECIALTY PHARMACEUTICALS, LLC-2018AVA00286

PATIENT
  Sex: Male
  Weight: 86.17 kg

DRUGS (4)
  1. NOCTIVA [Suspect]
     Active Substance: DESMOPRESSIN ACETATE
     Indication: NOCTURIA
     Dosage: 0.83 ?G, 1 SPRAY IN EACH NOSTRIL, 1X/DAY 30 MINUTES BEFORE BED
     Route: 045
     Dates: start: 2018
  2. CARVEDILOL. [Concomitant]
     Active Substance: CARVEDILOL
  3. CLONIDINE. [Concomitant]
     Active Substance: CLONIDINE
  4. OTHER UNSPECIFIED MEDICATIONS [Concomitant]
     Active Substance: UNSPECIFIED INGREDIENT

REACTIONS (2)
  - Nasal discomfort [Not Recovered/Not Resolved]
  - Rhinorrhoea [Not Recovered/Not Resolved]

NARRATIVE: CASE EVENT DATE: 2018
